FAERS Safety Report 18130492 (Version 3)
Quarter: 2020Q4

REPORT INFORMATION
  Report Type: Spontaneous
  Country: CZ (occurrence: CZ)
  Receive Date: 20200810
  Receipt Date: 20201126
  Transmission Date: 20210113
  Serious: Yes (Other)
  Sender: FDA-Public Use
  Company Number: CZ-JNJFOC-20200711807

PATIENT
  Age: 62 Year
  Sex: Male
  Weight: 125 kg

DRUGS (19)
  1. DUROGESIC [Suspect]
     Active Substance: FENTANYL
     Indication: PAIN
     Route: 062
  2. DICLOFENAC [Suspect]
     Active Substance: DICLOFENAC
     Dosage: AT A DOSE OF 100200 MG/WEEK
     Route: 065
  3. BUPRENORPHINE. [Suspect]
     Active Substance: BUPRENORPHINE
     Indication: PAIN
     Route: 062
  4. PREGABALIN. [Suspect]
     Active Substance: PREGABALIN
     Indication: PAIN
     Route: 065
  5. TAPENTADOL [Suspect]
     Active Substance: TAPENTADOL
     Indication: PAIN
     Route: 065
  6. DULOXETINE. [Suspect]
     Active Substance: DULOXETINE
     Indication: PRODUCT USED FOR UNKNOWN INDICATION
     Route: 065
  7. TRAMADOL                           /00599202/ [Suspect]
     Active Substance: TRAMADOL
     Indication: PAIN
     Route: 065
  8. CITALOPRAM [Suspect]
     Active Substance: CITALOPRAM HYDROBROMIDE
     Indication: ANTIDEPRESSANT THERAPY
     Route: 065
  9. TRAMADOL/PARACETAMOL [Suspect]
     Active Substance: ACETAMINOPHEN\TRAMADOL
     Indication: PAIN
     Dosage: UP TO 225 MG TRAMADOL PER DAY
     Route: 065
  10. OXYCODONE [Suspect]
     Active Substance: OXYCODONE
     Indication: PAIN
     Route: 065
  11. DICLOFENAC [Suspect]
     Active Substance: DICLOFENAC
     Indication: PAIN
     Dosage: AT A DOSE OF 100200 MG/WEEK
     Route: 065
  12. GABAPENTIN. [Suspect]
     Active Substance: GABAPENTIN
     Indication: ANALGESIC THERAPY
  13. GABAPENTIN. [Suspect]
     Active Substance: GABAPENTIN
     Indication: PAIN
  14. BISACODYL. [Concomitant]
     Active Substance: BISACODYL
     Indication: CONSTIPATION
     Route: 065
  15. TRAZODONE [Suspect]
     Active Substance: TRAZODONE HYDROCHLORIDE
     Indication: DEPRESSION
     Route: 065
  16. LACTULOSE. [Suspect]
     Active Substance: LACTULOSE
     Indication: CONSTIPATION
     Dosage: 250
     Route: 062
  17. MACROGOL [Suspect]
     Active Substance: POLYETHYLENE GLYCOLS
     Indication: CONSTIPATION
     Route: 065
  18. VENLAFAXINE [Suspect]
     Active Substance: VENLAFAXINE HYDROCHLORIDE
     Indication: PRODUCT USED FOR UNKNOWN INDICATION
     Route: 065
  19. NALOXONE W/OXYCODONE [Suspect]
     Active Substance: NALOXONE HYDROCHLORIDE\OXYCODONE HYDROCHLORIDE
     Indication: PAIN
     Route: 065

REACTIONS (17)
  - Functional gastrointestinal disorder [Recovering/Resolving]
  - Vomiting [Unknown]
  - Sedation [Unknown]
  - Drug ineffective [Unknown]
  - Nausea [Unknown]
  - Quality of life decreased [Recovering/Resolving]
  - Intentional overdose [Unknown]
  - Weight increased [Unknown]
  - Dry mouth [Unknown]
  - Condition aggravated [Recovered/Resolved]
  - Constipation [Recovered/Resolved]
  - Flatulence [Unknown]
  - Application site hypersensitivity [Unknown]
  - Mental impairment [Unknown]
  - Abdominal pain [Unknown]
  - Headache [Unknown]
  - Application site reaction [Unknown]
